FAERS Safety Report 8835834 (Version 2)
Quarter: 2012Q4

REPORT INFORMATION
  Report Type: 
  Country: AU (occurrence: AU)
  Receive Date: 20121011
  Receipt Date: 20121016
  Transmission Date: 20130627
  Serious: Yes (Hospitalization, Other)
  Sender: FDA-Public Use
  Company Number: AU-GLAXOSMITHKLINE-B0836664A

PATIENT
  Sex: Male

DRUGS (1)
  1. NEOTIGASON [Suspect]
     Indication: PITYRIASIS RUBRA PILARIS
     Route: 048
     Dates: start: 201209

REACTIONS (2)
  - Retinoic acid syndrome [Recovered/Resolved]
  - Systemic inflammatory response syndrome [Recovered/Resolved]
